FAERS Safety Report 18406366 (Version 1)
Quarter: 2020Q4

REPORT INFORMATION
  Report Type: Spontaneous
  Country: IE (occurrence: IE)
  Receive Date: 20201020
  Receipt Date: 20201020
  Transmission Date: 20210114
  Serious: Yes (Hospitalization)
  Sender: FDA-Public Use
  Company Number: IE-AMERICAN REGENT INC-2020002170

PATIENT
  Age: 45 Year
  Sex: Female
  Weight: 90 kg

DRUGS (1)
  1. FERINJECT [Suspect]
     Active Substance: FERRIC CARBOXYMALTOSE
     Indication: IRON DEFICIENCY ANAEMIA
     Dosage: 1 GM (ONCE OFF)
     Route: 042
     Dates: start: 20200825, end: 20200825

REACTIONS (3)
  - Urticaria [Recovered/Resolved]
  - Feeling cold [Recovered/Resolved]
  - Pruritus [Recovered/Resolved]

NARRATIVE: CASE EVENT DATE: 20200825
